FAERS Safety Report 17133883 (Version 1)
Quarter: 2019Q4

REPORT INFORMATION
  Report Type: Spontaneous
  Country: US (occurrence: US)
  Receive Date: 20191209
  Receipt Date: 20191209
  Transmission Date: 20200122
  Serious: Yes (Other)
  Sender: FDA-Public Use
  Company Number: None

PATIENT
  Age: 87 Year
  Sex: Female
  Weight: 79 kg

DRUGS (1)
  1. KEYTRUDA [Suspect]
     Active Substance: PEMBROLIZUMAB
     Indication: COLON CANCER
     Dosage: ?          OTHER FREQUENCY:EVERY 21 DAYS;?
     Route: 041

REACTIONS (6)
  - Protein urine present [None]
  - Diabetes mellitus inadequate control [None]
  - Diabetes mellitus [None]
  - Glycosylated haemoglobin decreased [None]
  - Blood thyroid stimulating hormone increased [None]
  - Toxicity to various agents [None]

NARRATIVE: CASE EVENT DATE: 20191115
